FAERS Safety Report 15369803 (Version 1)
Quarter: 2018Q3

REPORT INFORMATION
  Report Type: Report from Study
  Country: None (occurrence: US)
  Receive Date: 20180911
  Receipt Date: 20180911
  Transmission Date: 20181010
  Serious: No
  Sender: FDA-Public Use
  Company Number: US-BIOVITRUM-2018US0240

PATIENT
  Sex: Female

DRUGS (1)
  1. KINERET [Suspect]
     Active Substance: ANAKINRA
     Indication: RHEUMATOID ARTHRITIS
     Route: 058
     Dates: start: 20180223

REACTIONS (5)
  - Hypoacusis [Unknown]
  - Hypersensitivity [Unknown]
  - Ear discomfort [Unknown]
  - Injection site erythema [Unknown]
  - Injection site pruritus [Unknown]
